FAERS Safety Report 15662301 (Version 1)
Quarter: 2018Q4

REPORT INFORMATION
  Report Type: Report from Study
  Country: None (occurrence: CA)
  Receive Date: 20181127
  Receipt Date: 20181127
  Transmission Date: 20190205
  Serious: Yes (Hospitalization)
  Sender: FDA-Public Use
  Company Number: CA-ABBVIE-18P-028-2379604-00

PATIENT
  Age: 15 Year
  Sex: Male

DRUGS (57)
  1. VENETOCLAX. [Suspect]
     Active Substance: VENETOCLAX
     Dosage: GASTROSTOMY
     Route: 050
     Dates: start: 20180104, end: 20180424
  2. NYSTATIN. [Concomitant]
     Active Substance: NYSTATIN
     Dosage: SWAB IN MOUTH
     Dates: start: 20170715
  3. ACETAMINOPHENE [Concomitant]
     Indication: TRANSFUSION
  4. DIPENHYDRAMINE [Concomitant]
     Indication: HYPERSENSITIVITY
     Dosage: Q 6 HOURS PRN
     Route: 048
     Dates: start: 20180107
  5. DIPENHYDRAMINE [Concomitant]
     Indication: ALLERGY PROPHYLAXIS
  6. CASPOFONGIN [Concomitant]
     Indication: ANTIFUNGAL PROPHYLAXIS
     Route: 042
     Dates: start: 20180216
  7. CLOXACILLINE [Concomitant]
     Active Substance: CLOXACILLIN
     Indication: FEBRILE NEUTROPENIA
     Route: 048
     Dates: start: 20180526
  8. LORAZEPAM. [Concomitant]
     Active Substance: LORAZEPAM
     Indication: PROPHYLAXIS
     Dosage: Q 8 HOURS PRN
     Route: 060
     Dates: start: 20180324
  9. PREGABALIN. [Concomitant]
     Active Substance: PREGABALIN
     Indication: MYALGIA
     Route: 048
     Dates: start: 20180326, end: 20180326
  10. ZINC GLUCONATE [Concomitant]
     Active Substance: ZINC GLUCONATE
     Indication: PROMOTION OF WOUND HEALING
     Route: 048
     Dates: start: 20180413
  11. VENETOCLAX. [Suspect]
     Active Substance: VENETOCLAX
     Indication: REFRACTORY CANCER
     Dosage: GASTROSTOMY
     Route: 050
     Dates: start: 20171130, end: 20171130
  12. CYTARABINE. [Suspect]
     Active Substance: CYTARABINE
     Indication: RECURRENT CANCER
  13. POLYETHYLENE GLYCOL 3350. [Concomitant]
     Active Substance: POLYETHYLENE GLYCOL 3350
     Indication: CONSTIPATION
     Dosage: DAILY, PRN
     Route: 048
     Dates: start: 20110815
  14. NYSTATIN. [Concomitant]
     Active Substance: NYSTATIN
     Indication: PROPHYLAXIS
     Route: 048
     Dates: start: 20170715
  15. DIPENHYDRAMINE [Concomitant]
     Indication: PROPHYLAXIS
  16. VANCOMYCINE [Concomitant]
     Active Substance: VANCOMYCIN
     Indication: FEBRILE NEUTROPENIA
     Route: 042
     Dates: start: 20180107
  17. PREGABALIN. [Concomitant]
     Active Substance: PREGABALIN
     Indication: PAIN
     Route: 048
     Dates: start: 20180327
  18. VITAMIN D [Concomitant]
     Active Substance: CHOLECALCIFEROL
     Indication: VITAMIN SUPPLEMENTATION
     Route: 048
     Dates: start: 20140115
  19. ACETAMINOPHENE [Concomitant]
     Indication: PAIN
  20. SERTRALINE [Concomitant]
     Active Substance: SERTRALINE HYDROCHLORIDE
     Indication: BEHAVIOURAL THERAPY
  21. BENADRYL [Concomitant]
     Active Substance: DIPHENHYDRAMINE HYDROCHLORIDE
     Indication: PREMEDICATION
     Dosage: PRN BEFORE TRANSFUSION
     Route: 042
     Dates: start: 20171201
  22. HEPARIN LOCK [Concomitant]
     Indication: CATHETER MANAGEMENT
     Route: 042
     Dates: start: 20180116
  23. VENETOCLAX. [Suspect]
     Active Substance: VENETOCLAX
     Dosage: GASTROSTOMY
     Route: 050
     Dates: start: 20180511, end: 20180615
  24. MELATONIN [Concomitant]
     Active Substance: MELATONIN
     Indication: INSOMNIA
     Route: 048
     Dates: start: 20170615
  25. GRANISETRON [Concomitant]
     Active Substance: GRANISETRON
     Indication: PROPHYLAXIS OF NAUSEA AND VOMITING
     Dosage: Q 12 HOURS PRN
     Route: 048
     Dates: start: 20170214
  26. DIPENHYDRAMINE [Concomitant]
     Indication: PACKED RED BLOOD CELL TRANSFUSION
     Dosage: PRN, ONCE PRE-TRANSFUSION
     Route: 042
     Dates: start: 20180105
  27. CLOXACILLINE [Concomitant]
     Active Substance: CLOXACILLIN
     Indication: INFECTION
     Route: 048
     Dates: start: 20180417, end: 20180426
  28. LORAZEPAM. [Concomitant]
     Active Substance: LORAZEPAM
     Indication: ANXIETY
  29. BENADRYL [Concomitant]
     Active Substance: DIPHENHYDRAMINE HYDROCHLORIDE
     Indication: TRANSFUSION
  30. VENETOCLAX. [Suspect]
     Active Substance: VENETOCLAX
     Dosage: GASTROSTOMY
     Route: 050
     Dates: start: 20171201, end: 20180103
  31. VENETOCLAX. [Suspect]
     Active Substance: VENETOCLAX
     Dosage: GASTROSTOMY
     Route: 050
     Dates: start: 20180505, end: 20180510
  32. AZACITIDINE. [Suspect]
     Active Substance: AZACITIDINE
     Indication: RECURRENT CANCER
     Route: 058
     Dates: start: 20180223, end: 20180226
  33. PENTAMIDINE [Concomitant]
     Active Substance: PENTAMIDINE
     Indication: INFECTION PROPHYLAXIS
     Route: 042
     Dates: start: 20171115
  34. ACETAMINOPHENE [Concomitant]
     Indication: INFLUENZA LIKE ILLNESS
     Dosage: Q4H PRN
     Route: 048
     Dates: start: 20171129
  35. RANITIDINE. [Concomitant]
     Active Substance: RANITIDINE
     Indication: ANTACID THERAPY
     Route: 048
     Dates: start: 20180315
  36. NABILONE [Concomitant]
     Active Substance: NABILONE
     Indication: PAIN
     Route: 048
     Dates: start: 20180421
  37. SELENIUM [Concomitant]
     Active Substance: SELENIUM
     Indication: PROMOTION OF WOUND HEALING
     Route: 048
     Dates: start: 20180405
  38. VENETOCLAX. [Suspect]
     Active Substance: VENETOCLAX
     Dosage: GASTROSTOMY
     Route: 050
     Dates: start: 20180628
  39. POLYETHYLENE GLYCOL 3350. [Concomitant]
     Active Substance: POLYETHYLENE GLYCOL 3350
     Indication: CONSTIPATION PROPHYLAXIS
     Dosage: 0.279 G/KG/DAY
     Route: 048
     Dates: start: 20180326, end: 20180420
  40. POLYETHYLENE GLYCOL 3350. [Concomitant]
     Active Substance: POLYETHYLENE GLYCOL 3350
     Dosage: 0.279G/KG/DAY PRN
     Route: 048
     Dates: start: 20180421
  41. CLOXACILLINE [Concomitant]
     Active Substance: CLOXACILLIN
     Indication: SEPSIS
     Route: 042
     Dates: start: 20180324, end: 20180417
  42. AZACITIDINE. [Suspect]
     Active Substance: AZACITIDINE
     Indication: REFRACTORY CANCER
     Route: 058
     Dates: start: 20180104, end: 20180108
  43. ATIVAN [Concomitant]
     Active Substance: LORAZEPAM
     Indication: ANXIOLYTIC THERAPY
     Dosage: Q8H PRN
     Route: 048
     Dates: start: 20180112
  44. ACETAMINOPHENE [Concomitant]
     Indication: HEADACHE
     Dosage: Q4H PRN
     Route: 048
     Dates: start: 20180105
  45. SERTRALINE [Concomitant]
     Active Substance: SERTRALINE HYDROCHLORIDE
     Indication: ANTIDEPRESSANT THERAPY
     Route: 048
     Dates: start: 20180115
  46. CETIRIZINE [Concomitant]
     Active Substance: CETIRIZINE HYDROCHLORIDE
     Indication: ALLERGY PROPHYLAXIS
     Route: 048
     Dates: start: 20180311, end: 20180315
  47. CETIRIZINE [Concomitant]
     Active Substance: CETIRIZINE HYDROCHLORIDE
     Route: 048
     Dates: start: 20180326
  48. VENETOCLAX. [Suspect]
     Active Substance: VENETOCLAX
     Indication: RECURRENT CANCER
     Dosage: GASTROSTOMY
     Route: 050
     Dates: start: 20171129, end: 20171129
  49. CYTARABINE. [Suspect]
     Active Substance: CYTARABINE
     Indication: REFRACTORY CANCER
     Route: 042
     Dates: start: 20180430, end: 20180604
  50. GRANISETRON [Concomitant]
     Active Substance: GRANISETRON
     Indication: PROPHYLAXIS OF NAUSEA AND VOMITING
     Route: 048
     Dates: start: 20180106
  51. ACETAMINOPHENE [Concomitant]
     Indication: PYREXIA
  52. CEPACOL [Concomitant]
     Active Substance: BENZOCAINE
     Indication: OROPHARYNGEAL PAIN
     Dosage: Q4H PRN
     Route: 048
     Dates: start: 20171130
  53. TUMS [Concomitant]
     Active Substance: CALCIUM CARBONATE
     Indication: GASTROOESOPHAGEAL REFLUX DISEASE
     Route: 048
     Dates: start: 20171215
  54. DIPENHYDRAMINE [Concomitant]
     Indication: PLATELET TRANSFUSION
  55. DIPENHYDRAMINE [Concomitant]
     Indication: PREMEDICATION
  56. RANITIDINE. [Concomitant]
     Active Substance: RANITIDINE
     Indication: GASTROOESOPHAGEAL REFLUX PROPHYLAXIS
     Route: 042
     Dates: start: 20180107
  57. DOCUSATE SODIUM. [Concomitant]
     Active Substance: DOCUSATE SODIUM
     Indication: CONSTIPATION PROPHYLAXIS
     Route: 048
     Dates: start: 20180312

REACTIONS (3)
  - Sepsis [Recovered/Resolved]
  - Necrotising myositis [Recovered/Resolved]
  - Necrotising fasciitis [Recovered/Resolved]

NARRATIVE: CASE EVENT DATE: 20180602
